FAERS Safety Report 4511269-7 (Version None)
Quarter: 2004Q4

REPORT INFORMATION
  Report Type: 
  Country: None (occurrence: None)
  Receive Date: 20041122
  Receipt Date: 20041122
  Transmission Date: 20050328
  Serious: Yes (Other)
  Sender: FDA-Public Use
  Company Number: None

PATIENT
  Age: 54 Year
  Sex: Female
  Weight: 58.9676 kg

DRUGS (1)
  1. BUPROPRION 150 MG [Suspect]
     Dosage: 300 MG A DAY ORAL
     Route: 048
     Dates: start: 20020510, end: 20041113

REACTIONS (1)
  - ALOPECIA [None]
